FAERS Safety Report 9923131 (Version 1)
Quarter: 2014Q1

REPORT INFORMATION
  Report Type: Spontaneous
  Country: US (occurrence: US)
  Receive Date: 20140225
  Receipt Date: 20140225
  Transmission Date: 20141002
  Serious: No
  Sender: FDA-Public Use
  Company Number: US-AMGEN-USASP2013069884

PATIENT
  Age: 45 Year
  Sex: Female
  Weight: 59.86 kg

DRUGS (2)
  1. ENBREL [Suspect]
     Indication: PRODUCT USED FOR UNKNOWN INDICATION
     Dosage: 25 MG, TWICE PER WEEK
     Route: 058
     Dates: start: 201301
  2. METHOTREXATE [Concomitant]
     Dosage: 25 MG/ML, UNK

REACTIONS (2)
  - Injection site reaction [Unknown]
  - Injection site erythema [Unknown]
